FAERS Safety Report 6193374-5 (Version None)
Quarter: 2009Q2

REPORT INFORMATION
  Report Type: 
  Country: None (occurrence: None)
  Receive Date: 20090514
  Receipt Date: 20090514
  Transmission Date: 20091009
  Serious: Yes (Hospitalization)
  Sender: FDA-Public Use
  Company Number: None

PATIENT
  Age: 70 Year
  Sex: Male
  Weight: 64.18 kg

DRUGS (2)
  1. CETUXIMAB [Suspect]
     Indication: NEOPLASM MALIGNANT
     Dosage: 250 MG/M2 WEEKLY IV DRIP
     Route: 041
     Dates: start: 20090402, end: 20090506
  2. CISPLATIN [Suspect]
     Indication: NEOPLASM MALIGNANT
     Dosage: 30 MG/M2 WEEKLY IV DRIP
     Route: 041
     Dates: start: 20090408, end: 20090506

REACTIONS (5)
  - ANAEMIA [None]
  - PNEUMONIA [None]
  - ROAD TRAFFIC ACCIDENT [None]
  - SEPTIC SHOCK [None]
  - SYNCOPE [None]
